FAERS Safety Report 16196568 (Version 1)
Quarter: 2019Q2

REPORT INFORMATION
  Report Type: Spontaneous
  Country: US (occurrence: US)
  Receive Date: 20190412
  Receipt Date: 20190412
  Transmission Date: 20190711
  Serious: No
  Sender: FDA-Public Use
  Company Number: None

PATIENT
  Age: 50 Year
  Sex: Female
  Weight: 122.85 kg

DRUGS (1)
  1. BUPRENORPHINE TRANSDERMAL SYSTEM 10MCG PER HOUR TEVA [Suspect]
     Active Substance: BUPRENORPHINE
     Indication: BACK PAIN
     Dosage: ?          QUANTITY:4 PATCH(ES);OTHER FREQUENCY:WEEKLY;?
     Route: 062
     Dates: start: 20190411, end: 20190412

REACTIONS (4)
  - Product substitution issue [None]
  - Incorrect dose administered [None]
  - Device ineffective [None]
  - Product adhesion issue [None]

NARRATIVE: CASE EVENT DATE: 20190412
